FAERS Safety Report 22047126 (Version 2)
Quarter: 2023Q1

REPORT INFORMATION
  Report Type: Spontaneous
  Country: JP (occurrence: JP)
  Receive Date: 20230301
  Receipt Date: 20230317
  Transmission Date: 20230417
  Serious: Yes (Hospitalization, Other)
  Sender: FDA-Public Use
  Company Number: JP-TAKEDA-2023TJP002618

PATIENT
  Age: 34 Year
  Sex: Female

DRUGS (3)
  1. AMOXICILLIN\CLARITHROMYCIN\VONOPRAZAN FUMURATE [Suspect]
     Active Substance: AMOXICILLIN\CLARITHROMYCIN\VONOPRAZAN FUMURATE
     Indication: Helicobacter gastritis
     Dosage: UNK
     Route: 048
     Dates: start: 20220616, end: 20220622
  2. FAMOTIDINE [Concomitant]
     Active Substance: FAMOTIDINE
     Dosage: UNK
     Route: 048
  3. PREDNISOLONE [Concomitant]
     Active Substance: PREDNISOLONE
     Dosage: UNK
     Route: 048

REACTIONS (2)
  - Gastrointestinal haemorrhage [Recovering/Resolving]
  - Enterocolitis haemorrhagic [Recovering/Resolving]

NARRATIVE: CASE EVENT DATE: 20220620
